FAERS Safety Report 11620901 (Version 3)
Quarter: 2015Q4

REPORT INFORMATION
  Report Type: Report from Study
  Country: US (occurrence: US)
  Receive Date: 20151012
  Receipt Date: 20151231
  Transmission Date: 20160304
  Serious: Yes (Hospitalization)
  Sender: FDA-Public Use
  Company Number: US-GILEAD-2015-0176279

PATIENT
  Age: 75 Year
  Sex: Female

DRUGS (1)
  1. IDELALISIB [Suspect]
     Active Substance: IDELALISIB
     Indication: DIFFUSE LARGE B-CELL LYMPHOMA
     Dosage: 100 MG, BID
     Route: 048
     Dates: start: 201509

REACTIONS (4)
  - Off label use [Unknown]
  - Pain [Unknown]
  - Malaise [Unknown]
  - Pain in extremity [Unknown]
